FAERS Safety Report 19114956 (Version 1)
Quarter: 2021Q2

REPORT INFORMATION
  Report Type: Other
  Country: IT (occurrence: IT)
  Receive Date: 20210408
  Receipt Date: 20210408
  Transmission Date: 20210717
  Serious: Yes (Other)
  Sender: FDA-Public Use
  Company Number: IT-VALIDUS PHARMACEUTICALS LLC-IT-2021VAL000728

PATIENT
  Age: 92 Year
  Sex: Female

DRUGS (2)
  1. LASIX [Suspect]
     Active Substance: FUROSEMIDE
     Dosage: HE PATIENT HAS SELF?REDUCED HOME DIURETIC THERAPY
     Route: 048
  2. LASIX [Suspect]
     Active Substance: FUROSEMIDE
     Indication: OEDEMA
     Dosage: 25 MG, QD
     Route: 048

REACTIONS (2)
  - Product administration error [Unknown]
  - Dyspnoea [Recovering/Resolving]

NARRATIVE: CASE EVENT DATE: 20181225
